FAERS Safety Report 15722245 (Version 1)
Quarter: 2018Q4

REPORT INFORMATION
  Report Type: Spontaneous
  Country: JP (occurrence: JP)
  Receive Date: 20181214
  Receipt Date: 20181214
  Transmission Date: 20190205
  Serious: Yes (Hospitalization)
  Sender: FDA-Public Use
  Company Number: JP-GLAXOSMITHKLINE-JP2018JPN223027

PATIENT
  Age: 8 Decade
  Sex: Female

DRUGS (2)
  1. RELVAR ELLIPTA [Concomitant]
     Active Substance: FLUTICASONE FUROATE\VILANTEROL TRIFENATATE
     Dosage: 200 ?G, QD
  2. SERETIDE [Suspect]
     Active Substance: FLUTICASONE PROPIONATE\SALMETEROL XINAFOATE
     Indication: BRONCHITIS
     Dosage: 500 ?G, BID (IN THE MORNING AND AT THE NIGHT)
     Route: 055

REACTIONS (2)
  - Gallbladder disorder [Recovering/Resolving]
  - Product use in unapproved indication [Unknown]
